FAERS Safety Report 23031807 (Version 3)
Quarter: 2024Q1

REPORT INFORMATION
  Report Type: Spontaneous
  Country: US (occurrence: US)
  Receive Date: 20231005
  Receipt Date: 20240209
  Transmission Date: 20240410
  Serious: No
  Sender: FDA-Public Use
  Company Number: US-GSKCCFUS-Case-01815053_AE-101573

PATIENT
  Sex: Female

DRUGS (1)
  1. BENLYSTA [Suspect]
     Active Substance: BELIMUMAB
     Indication: Systemic lupus erythematosus
     Dosage: 200 MG, QD
     Route: 058
     Dates: start: 20230822

REACTIONS (10)
  - COVID-19 [Unknown]
  - Headache [Unknown]
  - Migraine [Unknown]
  - Nausea [Unknown]
  - Skin burning sensation [Unknown]
  - Pruritus [Unknown]
  - Stomatitis [Unknown]
  - Pyrexia [Unknown]
  - Hypersensitivity [Unknown]
  - Product storage error [Unknown]
